FAERS Safety Report 8496106-0 (Version None)
Quarter: 2012Q2

REPORT INFORMATION
  Report Type: 
  Country: None (occurrence: None)
  Receive Date: 20120629
  Receipt Date: 20120618
  Transmission Date: 20120825
  Serious: Yes (Hospitalization)
  Sender: FDA-Public Use
  Company Number: 135667

PATIENT
  Age: 60 Year
  Sex: Female
  Weight: 74 kg

DRUGS (1)
  1. LEUCOVORIN CALCIUM [Suspect]
     Indication: COLORECTAL CANCER METASTATIC
     Dosage: 400MG/M2
     Dates: start: 20120326

REACTIONS (8)
  - PNEUMOTHORAX TRAUMATIC [None]
  - ACTIVATED PARTIAL THROMBOPLASTIN TIME PROLONGED [None]
  - HEMIPARESIS [None]
  - SINUS TACHYCARDIA [None]
  - SPUTUM DISCOLOURED [None]
  - VIITH NERVE PARALYSIS [None]
  - CHILLS [None]
  - PLEURAL EFFUSION [None]
